FAERS Safety Report 15340813 (Version 9)
Quarter: 2020Q4

REPORT INFORMATION
  Report Type: Spontaneous
  Country: US (occurrence: US)
  Receive Date: 20180831
  Receipt Date: 20201210
  Transmission Date: 20210113
  Serious: Yes (Hospitalization, Other)
  Sender: FDA-Public Use
  Company Number: US-SA-2018SA239778

PATIENT

DRUGS (2)
  1. AUBAGIO [Suspect]
     Active Substance: TERIFLUNOMIDE
     Indication: MULTIPLE SCLEROSIS
     Dosage: 14 MG, QD
     Route: 048
     Dates: start: 20180227
  2. AUBAGIO [Suspect]
     Active Substance: TERIFLUNOMIDE
     Dosage: 14 MG, QD
     Route: 048
     Dates: start: 20180301

REACTIONS (7)
  - Multiple sclerosis [Unknown]
  - Urinary incontinence [Unknown]
  - Alopecia [Unknown]
  - Muscular weakness [Not Recovered/Not Resolved]
  - Gait inability [Unknown]
  - Fatigue [Unknown]
  - Crying [Unknown]
